FAERS Safety Report 5199866-X (Version None)
Quarter: 2007Q1

REPORT INFORMATION
  Report Type: 
  Country: None (occurrence: None)
  Receive Date: 20070102
  Receipt Date: 20070102
  Transmission Date: 20070707
  Serious: Yes (Hospitalization)
  Sender: FDA-Public Use
  Company Number: None

PATIENT
  Age: 51 Year
  Sex: Male
  Weight: 134.7183 kg

DRUGS (9)
  1. CLOZAPINE [Suspect]
     Indication: SCHIZOPHRENIA
     Dosage: 50 MG AM PO 100 MG PM PO
     Route: 048
     Dates: start: 20061129, end: 20061215
  2. OLANZAPINE [Concomitant]
  3. METOPRALOL [Concomitant]
  4. LOVASTATIN [Concomitant]
  5. LEVOFLOXACIN [Concomitant]
  6. LORAZEPAM [Concomitant]
  7. TRAZODONE HCL [Concomitant]
  8. LOPERIMIDE [Concomitant]
  9. IBUPROFEN [Concomitant]

REACTIONS (8)
  - CARDIAC FAILURE CONGESTIVE [None]
  - DYSPNOEA [None]
  - EJECTION FRACTION DECREASED [None]
  - HEART RATE INCREASED [None]
  - MYOCARDITIS [None]
  - PYREXIA [None]
  - SINUS TACHYCARDIA [None]
  - TROPONIN INCREASED [None]
